FAERS Safety Report 7065242-8 (Version None)
Quarter: 2010Q4

REPORT INFORMATION
  Report Type: 
  Country: None (occurrence: None)
  Receive Date: 20101027
  Receipt Date: 20101018
  Transmission Date: 20110411
  Serious: Yes (Death, Other)
  Sender: FDA-Public Use
  Company Number: JP-ROCHE-720093

PATIENT
  Sex: Male
  Weight: 60 kg

DRUGS (23)
  1. TOCILIZUMAB [Suspect]
     Indication: RHEUMATOID ARTHRITIS
     Route: 041
     Dates: start: 20080703, end: 20080703
  2. TOCILIZUMAB [Suspect]
     Route: 041
     Dates: start: 20080731, end: 20080731
  3. TOCILIZUMAB [Suspect]
     Route: 041
     Dates: start: 20080828, end: 20080828
  4. TOCILIZUMAB [Suspect]
     Route: 041
     Dates: start: 20080925, end: 20080925
  5. TOCILIZUMAB [Suspect]
     Route: 041
     Dates: start: 20081023, end: 20081023
  6. TOCILIZUMAB [Suspect]
     Route: 041
     Dates: start: 20081120, end: 20081120
  7. TOCILIZUMAB [Suspect]
     Route: 041
     Dates: start: 20081225, end: 20081225
  8. TOCILIZUMAB [Suspect]
     Route: 041
     Dates: start: 20090129, end: 20090129
  9. TOCILIZUMAB [Suspect]
     Route: 041
     Dates: start: 20090305, end: 20090305
  10. TOCILIZUMAB [Suspect]
     Route: 041
     Dates: start: 20090402, end: 20090402
  11. TOCILIZUMAB [Suspect]
     Route: 041
     Dates: start: 20090430, end: 20090430
  12. TOCILIZUMAB [Suspect]
     Route: 041
     Dates: start: 20090528, end: 20090528
  13. TOCILIZUMAB [Suspect]
     Dosage: ACTION TAKEN: DISCONTINUED
     Route: 041
     Dates: start: 20090625, end: 20090625
  14. PREDNISOLONE [Concomitant]
     Dosage: DOSE FORM: PERORAL AGENT.
     Route: 048
  15. COMELIAN [Concomitant]
     Route: 048
  16. ZYLORIC [Concomitant]
     Route: 048
  17. CILOSTAZOL [Concomitant]
     Route: 048
  18. SELBEX [Concomitant]
     Route: 048
  19. AMLODIPINE [Concomitant]
     Route: 048
  20. MICARDIS [Concomitant]
     Route: 048
  21. BROTIZOLAM [Concomitant]
     Route: 048
  22. HUMACART R [Concomitant]
     Route: 058
  23. HUMACART N [Concomitant]
     Route: 058

REACTIONS (2)
  - PANCREATIC CARCINOMA METASTATIC [None]
  - STAPHYLOCOCCAL INFECTION [None]
